FAERS Safety Report 10731370 (Version 3)
Quarter: 2015Q2

REPORT INFORMATION
  Report Type: Report from Study
  Country: AU (occurrence: AU)
  Receive Date: 20150122
  Receipt Date: 20150423
  Transmission Date: 20150821
  Serious: Yes (Hospitalization, Other)
  Sender: FDA-Public Use
  Company Number: AU-ROCHE-1485193

PATIENT
  Age: 66 Year
  Sex: Female
  Weight: 100 kg

DRUGS (23)
  1. ACTEMRA [Suspect]
     Active Substance: TOCILIZUMAB
     Indication: RHEUMATOID ARTHRITIS
     Route: 042
     Dates: start: 20141027
  2. MAREVAN [Concomitant]
     Active Substance: WARFARIN SODIUM
     Dosage: ONGOING FOR 12 YEARS
     Route: 046
  3. CRANBERRY. [Concomitant]
     Active Substance: CRANBERRY
     Dosage: ONGOING FOR 3 MONTH
     Route: 048
  4. SOLIFENACIN [Concomitant]
     Active Substance: SOLIFENACIN
     Indication: MUSCLE SPASMS
  5. SIFROL [Concomitant]
     Active Substance: PRAMIPEXOLE
     Indication: RESTLESS LEGS SYNDROME
     Dosage: ONGOING FOR 10 YEARS
     Route: 048
  6. POTASSIUM CHLORIDE SR [Concomitant]
     Dosage: ONGOING FOR 3 MONTH, (600MG TABLET X2)
     Route: 048
  7. HYDROCHLOROTHIAZIDE. [Concomitant]
     Active Substance: HYDROCHLOROTHIAZIDE
     Dosage: ONGOING
     Route: 048
     Dates: start: 20141029
  8. SPIRACTIN (AUSTRALIA) [Concomitant]
     Indication: FLUID RETENTION
  9. MAREVAN [Concomitant]
     Active Substance: WARFARIN SODIUM
     Indication: ATRIAL FIBRILLATION
     Dosage: ONGOING FOR 12 YEARS
     Route: 048
  10. DIGOXIN. [Concomitant]
     Active Substance: DIGOXIN
     Indication: ATRIAL FIBRILLATION
     Route: 048
     Dates: start: 20141219
  11. ASPIRIN. [Concomitant]
     Active Substance: ASPIRIN
     Indication: MYOCARDIAL ISCHAEMIA
     Dosage: STARTED 1 WEEK AGO PRIOR TO 20-JAN-2015
     Route: 065
  12. MOCLOBEMIDE [Concomitant]
     Active Substance: MOCLOBEMIDE
     Indication: DEPRESSION
     Dosage: ONGOING FOR 6 YEARS
     Route: 048
  13. LACTULOSE SYRUP [Concomitant]
     Indication: CONSTIPATION
     Dosage: ONGOING FOR 1 YEAR, 20-30 ML
     Route: 048
  14. MEGAFOL [Concomitant]
     Active Substance: FOLIC ACID
     Indication: RHEUMATOID ARTHRITIS
     Dosage: ONGOING FOR 1 YEAR
     Route: 048
  15. HIPREX [Concomitant]
     Active Substance: METHENAMINE HIPPURATE
     Indication: CYSTITIS
     Dosage: ALTERNATING MONTHLY WITH CEPHALEXIN, ONGOING 2 MTH
     Route: 048
  16. NOTEN [Concomitant]
     Active Substance: ATENOLOL
     Indication: ATRIAL FIBRILLATION
     Dosage: ONGOING FOR 2 YEARS
     Route: 048
  17. UREMIDE [Concomitant]
     Active Substance: FUROSEMIDE
     Indication: FLUID RETENTION
     Dosage: ONGOING FOR 10 YEARS, ONGOING FOR 10 YEARS;
     Route: 048
  18. PROGOUT [Concomitant]
     Active Substance: ALLOPURINOL
     Indication: GOUT
     Dosage: ONGOING FOR 10 YEARS
     Route: 048
  19. SOLIFENACIN [Concomitant]
     Active Substance: SOLIFENACIN
     Indication: URINARY INCONTINENCE
     Dosage: 1/2 TABLET, ONGOING FOR 5 MONTHS
     Route: 048
  20. SPIRACTIN (AUSTRALIA) [Concomitant]
     Indication: URINARY INCONTINENCE
     Dosage: ONGOING FOR 5 YEARS
     Route: 048
  21. PANADOL [Concomitant]
     Active Substance: ACETAMINOPHEN
     Indication: OSTEOARTHRITIS
     Dosage: ONGOING FOR 6 YEARS
     Route: 048
  22. PANTOPRAZOLE [Concomitant]
     Active Substance: PANTOPRAZOLE SODIUM
     Dosage: ONGOING FOR 10 YEARS
     Route: 048
  23. MODAVIGIL [Concomitant]
     Active Substance: MODAFINIL
     Indication: NARCOLEPSY
     Dosage: ONGOING FOR 4 YEARS100MG TABLETS 2 MANE, 1 NOON
     Route: 048

REACTIONS (11)
  - Mouth ulceration [Recovering/Resolving]
  - Dizziness [Recovered/Resolved]
  - Atrial fibrillation [Recovered/Resolved]
  - Balance disorder [Recovered/Resolved]
  - Vomiting [Recovered/Resolved]
  - Blood pressure increased [Recovered/Resolved]
  - Pain in extremity [Not Recovered/Not Resolved]
  - Angina pectoris [Recovered/Resolved]
  - Chest pain [Recovered/Resolved]
  - Heart rate increased [Recovered/Resolved]
  - Muscle spasms [Unknown]

NARRATIVE: CASE EVENT DATE: 20141028
